FAERS Safety Report 11376524 (Version 1)
Quarter: 2015Q3

REPORT INFORMATION
  Report Type: Spontaneous
  Country: US (occurrence: US)
  Receive Date: 20150813
  Receipt Date: 20150813
  Transmission Date: 20151125
  Serious: Yes (Death, Other)
  Sender: FDA-Public Use
  Company Number: US-ASTRAZENECA-2015SE76445

PATIENT
  Age: 23620 Day
  Sex: Female
  Weight: 59 kg

DRUGS (3)
  1. TAXOL [Concomitant]
     Active Substance: PACLITAXEL
     Dosage: SLOWER RATE OF 1 LITER IN 8 HOURS
  2. OLAPARIB [Suspect]
     Active Substance: OLAPARIB
     Indication: OVARIAN CANCER
     Dosage: 4 CAPSULES IN THE MORNING AND 4 CAPSULES IN THE EVENING
     Route: 048
  3. OLAPARIB [Suspect]
     Active Substance: OLAPARIB
     Indication: OVARIAN CANCER
     Dosage: TWO TIMES A DAY
     Route: 048

REACTIONS (5)
  - Death [Fatal]
  - Bile duct obstruction [Unknown]
  - Procedural complication [Unknown]
  - Intentional product misuse [Unknown]
  - Duodenal obstruction [Unknown]

NARRATIVE: CASE EVENT DATE: 201412
